FAERS Safety Report 9034673 (Version 1)
Quarter: 2013Q1

REPORT INFORMATION
  Report Type: Spontaneous
  Country: DE (occurrence: None)
  Receive Date: 20130118
  Receipt Date: 20130118
  Transmission Date: 20140127
  Serious: Yes (Life-Threatening, Hospitalization, Other)
  Sender: FDA-Public Use
  Company Number: 2013P1000355

PATIENT
  Age: 66 Year
  Sex: Male

DRUGS (9)
  1. PROTAMINE [Suspect]
     Dosage: 5000 IE
  2. BISOPROLOL [Concomitant]
  3. DIOVAN [Concomitant]
  4. SIMVASTATIN [Concomitant]
  5. MIDAZOLAM HCL [Concomitant]
  6. REMIFENTANIL [Concomitant]
  7. PROPOFOL [Concomitant]
  8. ROCURONIUM [Concomitant]
  9. HEPARIN [Concomitant]

REACTIONS (7)
  - Myocardial infarction [None]
  - Hypertension [None]
  - Erythema [None]
  - Hypocapnia [None]
  - Oxygen saturation decreased [None]
  - Electrocardiogram ST segment elevation [None]
  - Anaphylactic reaction [None]
